FAERS Safety Report 8496941-9 (Version None)
Quarter: 2012Q3

REPORT INFORMATION
  Report Type: 
  Country: None (occurrence: None)
  Receive Date: 20120709
  Receipt Date: 20120703
  Transmission Date: 20120928
  Serious: Yes (Hospitalization, Other)
  Sender: FDA-Public Use
  Company Number: US-AMGEN-USASP2011064294

PATIENT
  Age: 58 Year
  Sex: Male

DRUGS (3)
  1. ENBREL [Suspect]
     Indication: RHEUMATOID ARTHRITIS
     Dosage: 50 MG, QWK
     Dates: start: 20110301, end: 20111111
  2. ENBREL [Suspect]
     Dosage: 50 MG, QWK
     Dates: start: 19980201
  3. PREDNISONE [Concomitant]
     Dosage: UNK

REACTIONS (14)
  - COUGH [None]
  - WEIGHT INCREASED [None]
  - PLEURAL EFFUSION [None]
  - ARTHRITIS [None]
  - DYSPNOEA [None]
  - CHRONIC OBSTRUCTIVE PULMONARY DISEASE [None]
  - VISUAL IMPAIRMENT [None]
  - HERPES ZOSTER [None]
  - DRUG INEFFECTIVE [None]
  - RHEUMATOID LUNG [None]
  - MENISCUS LESION [None]
  - EYE PAIN [None]
  - RHEUMATOID ARTHRITIS [None]
  - CATARACT [None]
